FAERS Safety Report 20576272 (Version 1)
Quarter: 2022Q1

REPORT INFORMATION
  Report Type: Spontaneous
  Country: US (occurrence: US)
  Receive Date: 20220310
  Receipt Date: 20220310
  Transmission Date: 20220423
  Serious: No
  Sender: FDA-Public Use
  Company Number: US-STRIDES ARCOLAB LIMITED-2022SP001087

PATIENT
  Age: 8 Decade
  Sex: Female

DRUGS (6)
  1. PREDNISOLONE [Suspect]
     Active Substance: PREDNISOLONE
     Indication: Myasthenia gravis
     Dosage: 11 MILLIGRAM DAILY
     Route: 065
  2. MYCOPHENOLATE SODIUM [Suspect]
     Active Substance: MYCOPHENOLATE SODIUM
     Indication: Myasthenia gravis
     Dosage: 1440 MILLIGRAM UNK
     Route: 065
  3. ECULIZUMAB [Suspect]
     Active Substance: ECULIZUMAB
     Indication: Myasthenia gravis
     Dosage: UNK UNK, ONCE A WEEK (WEEKLY)
     Route: 065
  4. ECULIZUMAB [Suspect]
     Active Substance: ECULIZUMAB
     Indication: Adjuvant therapy
     Dosage: UNK, 2 TIMES A WEEK (BIWEEKLY)
     Route: 065
  5. ECULIZUMAB [Suspect]
     Active Substance: ECULIZUMAB
     Dosage: UNK ADDITIONAL DOSE
     Route: 065
  6. TOZINAMERAN [Concomitant]
     Active Substance: TOZINAMERAN
     Indication: COVID-19 immunisation
     Dosage: UNK,RECEIVED 2 DOSES 21 DAYS APART
     Route: 065

REACTIONS (1)
  - Therapeutic product effect decreased [Unknown]
